FAERS Safety Report 12797917 (Version 3)
Quarter: 2018Q2

REPORT INFORMATION
  Report Type: Report from Study
  Country: KR (occurrence: KR)
  Receive Date: 20160930
  Receipt Date: 20180425
  Transmission Date: 20180711
  Serious: Yes (Hospitalization)
  Sender: FDA-Public Use
  Company Number: KR-GLAXOSMITHKLINE-KR2016GSK141270

PATIENT
  Age: 70 Year
  Sex: Male

DRUGS (6)
  1. UMECLIDINIUM BR+VILANTEROL TRIFENATATE [Suspect]
     Active Substance: UMECLIDINIUM BROMIDE\VILANTEROL TRIFENATATE
     Indication: CHRONIC OBSTRUCTIVE PULMONARY DISEASE
     Dosage: 25 MG, QD
     Route: 055
     Dates: start: 20160824
  2. ISOPTIN [Concomitant]
     Active Substance: VERAPAMIL HYDROCHLORIDE
     Indication: ATRIAL FIBRILLATION
     Dosage: 180 MG, 1D
     Route: 048
     Dates: start: 20160127
  3. ERDOS [Concomitant]
     Active Substance: ERDOSTEINE
     Indication: CHRONIC OBSTRUCTIVE PULMONARY DISEASE
     Dosage: 300 MG, BID
     Route: 048
     Dates: start: 20131219
  4. ASIMA [Concomitant]
     Active Substance: DOXOFYLLINE
     Indication: CHRONIC OBSTRUCTIVE PULMONARY DISEASE
     Dosage: 400 MG, BID
     Route: 048
     Dates: start: 20131219
  5. ANTIBIOTICS NOS [Concomitant]
     Active Substance: UNSPECIFIED INGREDIENT
  6. ASPIRIN. [Concomitant]
     Active Substance: ASPIRIN
     Indication: ATRIAL FIBRILLATION
     Dosage: 100 MG, QD
     Route: 048
     Dates: start: 20160127

REACTIONS (1)
  - Dyspnoea [Recovered/Resolved]

NARRATIVE: CASE EVENT DATE: 20160921
